FAERS Safety Report 6205827-1 (Version None)
Quarter: 2009Q2

REPORT INFORMATION
  Report Type: 
  Country: None (occurrence: None)
  Receive Date: 20090527
  Receipt Date: 20090504
  Transmission Date: 20091009
  Serious: No
  Sender: FDA-Public Use
  Company Number: US-ABBOTT-09P-163-0571353-00

PATIENT
  Sex: Male

DRUGS (5)
  1. SIMCOR [Suspect]
     Indication: HYPERCHOLESTEROLAEMIA
     Dosage: 500/20 MILLIGRAMS AT BEDTIME
     Route: 048
     Dates: start: 20090401
  2. ASPIRIN [Concomitant]
     Indication: DRUG USE FOR UNKNOWN INDICATION
     Route: 048
  3. PLAVIX [Concomitant]
     Indication: DRUG USE FOR UNKNOWN INDICATION
  4. CARDURA [Concomitant]
     Indication: DRUG USE FOR UNKNOWN INDICATION
  5. HYPERTENSION MEDICATIONS [Concomitant]
     Indication: HYPERTENSION

REACTIONS (2)
  - BACK PAIN [None]
  - BLOOD GLUCOSE INCREASED [None]
